FAERS Safety Report 22595234 (Version 2)
Quarter: 2023Q2

REPORT INFORMATION
  Report Type: Report from Study
  Country: JP (occurrence: JP)
  Receive Date: 20230613
  Receipt Date: 20230620
  Transmission Date: 20230722
  Serious: Yes (Other)
  Sender: FDA-Public Use
  Company Number: JP-CELLTRION INC.-2020JP024967

PATIENT

DRUGS (17)
  1. INFLIXIMAB-DYYB [Suspect]
     Active Substance: INFLIXIMAB-DYYB
     Indication: Colitis ulcerative
     Dosage: 410 MG
     Route: 041
     Dates: start: 20181017, end: 20181017
  2. INFLIXIMAB-DYYB [Suspect]
     Active Substance: INFLIXIMAB-DYYB
     Dosage: 415 MG
     Route: 041
     Dates: start: 20181212, end: 20181212
  3. INFLIXIMAB-DYYB [Suspect]
     Active Substance: INFLIXIMAB-DYYB
     Dosage: 410 MG
     Route: 041
     Dates: start: 20190206, end: 20190206
  4. INFLIXIMAB-DYYB [Suspect]
     Active Substance: INFLIXIMAB-DYYB
     Dosage: 415 MG
     Route: 041
     Dates: start: 20190403, end: 20190403
  5. INFLIXIMAB-DYYB [Suspect]
     Active Substance: INFLIXIMAB-DYYB
     Dosage: 415 MG
     Route: 041
     Dates: start: 20190918, end: 20190918
  6. INFLIXIMAB-DYYB [Suspect]
     Active Substance: INFLIXIMAB-DYYB
     Dosage: 395 MG
     Route: 041
     Dates: start: 20201006, end: 20201006
  7. INFLIXIMAB-DYYB [Suspect]
     Active Substance: INFLIXIMAB-DYYB
     Dosage: 405 MG
     Route: 041
     Dates: start: 20211102, end: 20211102
  8. INFLIXIMAB-DYYB [Suspect]
     Active Substance: INFLIXIMAB-DYYB
     Dosage: 370 MG
     Route: 041
     Dates: start: 20221115, end: 20221115
  9. AZATHIOPRINE [Suspect]
     Active Substance: AZATHIOPRINE
     Indication: Colitis ulcerative
     Dosage: 100 MILLIGRAM
     Route: 048
     Dates: start: 20210406, end: 20210906
  10. MESALAMINE [Concomitant]
     Active Substance: MESALAMINE
     Dosage: 4800 MILLIGRAM/DAY
     Route: 048
     Dates: start: 20180703
  11. AZATHIOPRINE [Concomitant]
     Active Substance: AZATHIOPRINE
     Indication: Colitis ulcerative
     Dosage: 50 MILLIGRAM/DAY
     Route: 048
     Dates: start: 20180829, end: 20210405
  12. AZATHIOPRINE [Concomitant]
     Active Substance: AZATHIOPRINE
     Dosage: 75 MILLIGRAM/DAY
     Route: 048
     Dates: start: 20210907
  13. AZATHIOPRINE [Concomitant]
     Active Substance: AZATHIOPRINE
     Dosage: 100 MILLIGRAM/DAY
     Route: 048
     Dates: start: 20230114
  14. BUDESONIDE [Concomitant]
     Active Substance: BUDESONIDE
     Indication: Colitis ulcerative
     Dosage: 4 MILLIGRAM/ DAY
     Route: 054
     Dates: start: 20210615, end: 20210727
  15. BUDESONIDE [Concomitant]
     Active Substance: BUDESONIDE
     Dosage: 4 MILLIGRAM/ DAY
     Route: 054
     Dates: start: 20220901, end: 20220925
  16. BUDESONIDE [Concomitant]
     Active Substance: BUDESONIDE
     Dosage: 4 MILLIGRAM/ DAY
     Route: 054
     Dates: start: 20230105, end: 20230214
  17. SULFASALAZINE [Concomitant]
     Active Substance: SULFASALAZINE
     Indication: Colitis ulcerative
     Dosage: 2000 MILLIGRAM/ DAY
     Route: 048
     Dates: start: 20210615

REACTIONS (6)
  - COVID-19 [Recovered/Resolved]
  - Sinusitis [Recovered/Resolved]
  - Sinusitis [Recovering/Resolving]
  - Nausea [Unknown]
  - Urticaria [Not Recovered/Not Resolved]
  - Intentional product use issue [Unknown]

NARRATIVE: CASE EVENT DATE: 20190901
